FAERS Safety Report 8346000-0 (Version None)
Quarter: 2012Q2

REPORT INFORMATION
  Report Type: 
  Country: None (occurrence: None)
  Receive Date: 20120509
  Receipt Date: 20120507
  Transmission Date: 20120825
  Serious: Yes (Hospitalization)
  Sender: FDA-Public Use
  Company Number: US-PFIZER INC-2012109991

PATIENT
  Sex: Female
  Weight: 86.168 kg

DRUGS (7)
  1. CRESTOR [Concomitant]
     Dosage: 5 MG, UNK
  2. LYRICA [Suspect]
     Indication: NEURALGIA
     Dosage: 50 MG, ONCE IN THE MORNING AND 100MG ONCE IN THE EVENING
     Route: 048
     Dates: start: 20120101, end: 20120401
  3. ACETYLSALICYLIC ACID [Concomitant]
     Dosage: UNK
  4. LISINOPRIL [Concomitant]
     Dosage: UNK, 1X/DAY
  5. LASIX [Concomitant]
     Dosage: 40 MG, 1X/DAY
  6. PLAVIX [Concomitant]
     Dosage: 75 MG, UNK
  7. LOPRESSOR [Concomitant]
     Dosage: 100 MG, 1X/DAY

REACTIONS (1)
  - DYSPNOEA [None]
